FAERS Safety Report 15447440 (Version 2)
Quarter: 2018Q4

REPORT INFORMATION
  Report Type: Spontaneous
  Country: FR (occurrence: FR)
  Receive Date: 20180928
  Receipt Date: 20181003
  Transmission Date: 20190204
  Serious: Yes (Other)
  Sender: FDA-Public Use
  Company Number: FR-BAUSCH-BL-2018-026654

PATIENT
  Age: 64 Year
  Sex: Male
  Weight: 95 kg

DRUGS (9)
  1. FLUOROURACIL. [Suspect]
     Active Substance: FLUOROURACIL
     Indication: OESOPHAGEAL ADENOCARCINOMA
     Dosage: 1 CYCLICAL, QCY
     Route: 065
     Dates: start: 20120202, end: 20120202
  2. OXALIPLATIN. [Suspect]
     Active Substance: OXALIPLATIN
     Route: 065
     Dates: start: 20120412, end: 20120412
  3. FOLINIC ACID [Suspect]
     Active Substance: LEUCOVORIN
     Indication: METASTASES TO LIVER
     Dosage: 1 CYCLICAL, QCY
     Route: 065
     Dates: start: 20120412, end: 20120412
  4. FOLINIC ACID [Suspect]
     Active Substance: LEUCOVORIN
     Dosage: 3 CYCLICAL
     Route: 065
  5. OXALIPLATIN. [Suspect]
     Active Substance: OXALIPLATIN
     Indication: METASTASES TO LIVER
     Route: 065
     Dates: start: 20120202, end: 20120202
  6. FOLINIC ACID [Suspect]
     Active Substance: LEUCOVORIN
     Indication: OESOPHAGEAL ADENOCARCINOMA
     Dosage: 1 CYCLICAL
     Route: 065
     Dates: start: 20120202, end: 20120202
  7. FLUOROURACIL. [Suspect]
     Active Substance: FLUOROURACIL
     Indication: METASTASES TO LIVER
     Dosage: 1 CYCLICAL
     Route: 065
     Dates: start: 20120412, end: 20120412
  8. FLUOROURACIL. [Suspect]
     Active Substance: FLUOROURACIL
     Dosage: THIRD CYCLICAL
     Route: 065
  9. OXALIPLATIN. [Suspect]
     Active Substance: OXALIPLATIN
     Indication: OESOPHAGEAL ADENOCARCINOMA
     Dosage: 1 CYCLICAL
     Route: 065

REACTIONS (2)
  - Neuropathy peripheral [Recovering/Resolving]
  - Hepatomegaly [Unknown]

NARRATIVE: CASE EVENT DATE: 201204
